FAERS Safety Report 8370399-2 (Version None)
Quarter: 2012Q2

REPORT INFORMATION
  Report Type: 
  Country: None (occurrence: None)
  Receive Date: 20120518
  Receipt Date: 20120511
  Transmission Date: 20120825
  Serious: Yes (Hospitalization)
  Sender: FDA-Public Use
  Company Number: JP-CELGENEUS-087-21880-12041771

PATIENT
  Sex: Male

DRUGS (25)
  1. REVLIMID [Suspect]
     Indication: MULTIPLE MYELOMA
  2. ASPIRIN [Concomitant]
     Route: 065
     Dates: start: 20120124, end: 20120404
  3. LEVOFLOXACIN HYDRATE [Concomitant]
     Route: 065
     Dates: start: 20120412, end: 20120418
  4. ACETAMINOPHEN [Concomitant]
     Route: 065
     Dates: start: 20120209, end: 20120214
  5. PANTETHINE [Concomitant]
     Route: 065
     Dates: start: 20120126
  6. LEVOFLOXACIN HYDRATE [Concomitant]
     Route: 065
     Dates: start: 20120126, end: 20120130
  7. EVIPROSTAT [Concomitant]
     Route: 065
     Dates: start: 20120307
  8. SILODOSIN [Concomitant]
     Route: 065
     Dates: start: 20120307
  9. GLYCINE [Concomitant]
     Route: 065
     Dates: start: 20120127
  10. ELOTUZUMAB [Suspect]
     Indication: MULTIPLE MYELOMA
  11. ACETAMINOPHEN [Concomitant]
     Route: 065
     Dates: start: 20120126, end: 20120127
  12. MAGNESIUM OXIDE [Concomitant]
     Route: 065
     Dates: start: 20120126
  13. METOCLOPRAMIDE HCL [Concomitant]
     Route: 065
     Dates: start: 20120126, end: 20120126
  14. FAMOTIDINE [Concomitant]
     Route: 065
     Dates: start: 20111228
  15. DEXAMETHASONE [Suspect]
     Indication: MULTIPLE MYELOMA
  16. ASPIRIN [Concomitant]
     Route: 065
     Dates: start: 20120418, end: 20120418
  17. ASPIRIN [Concomitant]
     Route: 065
     Dates: start: 20120426
  18. PREDNISOLONE [Concomitant]
     Route: 065
     Dates: start: 20120208
  19. SYAKUYAKU-KANZO [Concomitant]
     Route: 065
     Dates: start: 20120301
  20. CEFAZOLIN SODIUM [Concomitant]
     Route: 065
     Dates: start: 20120413, end: 20120414
  21. TAMSULOSIN HYDROCHLORIDE [Concomitant]
     Route: 065
     Dates: start: 20111104, end: 20120307
  22. ZOPICLONE [Concomitant]
     Route: 065
     Dates: start: 20120125, end: 20120125
  23. CARBAZOCHROME SODIUM SULFATE HYDRATE [Concomitant]
     Route: 065
     Dates: start: 20120413, end: 20120414
  24. VIDARABINE [Concomitant]
     Route: 065
     Dates: start: 20120123, end: 20120130
  25. TRIMETHOPRIM [Concomitant]
     Route: 065
     Dates: start: 20111228

REACTIONS (1)
  - BENIGN PROSTATIC HYPERPLASIA [None]
